FAERS Safety Report 10911176 (Version 2)
Quarter: 2015Q1

REPORT INFORMATION
  Report Type: Spontaneous
  Country: FR (occurrence: FR)
  Receive Date: 20150312
  Receipt Date: 20150313
  Transmission Date: 20150721
  Serious: No
  Sender: FDA-Public Use
  Company Number: FR-ALLERGAN-1503708US

PATIENT
  Age: 17 Year
  Sex: Female

DRUGS (2)
  1. BOTOX [Suspect]
     Active Substance: ONABOTULINUMTOXINA
     Indication: MUSCLE DISORDER
     Dosage: 80 UNITS, SINGLE
     Route: 030
     Dates: start: 20150126, end: 20150126
  2. KALINOX [Concomitant]
     Active Substance: NITROUS OXIDE
     Indication: SEDATION
     Dosage: UNKNOWN
     Route: 055
     Dates: start: 20150126, end: 20150126

REACTIONS (3)
  - Blue toe syndrome [Recovering/Resolving]
  - Vasoconstriction [Recovering/Resolving]
  - Off label use [Unknown]

NARRATIVE: CASE EVENT DATE: 20150202
